FAERS Safety Report 13492546 (Version 1)
Quarter: 2017Q2

REPORT INFORMATION
  Report Type: Spontaneous
  Country: US (occurrence: US)
  Receive Date: 20170427
  Receipt Date: 20170427
  Transmission Date: 20170830
  Serious: No
  Sender: FDA-Public Use
  Company Number: US-BAYER-2017-076088

PATIENT
  Sex: Female

DRUGS (1)
  1. MIRENA [Suspect]
     Active Substance: LEVONORGESTREL
     Indication: MENORRHAGIA
     Dosage: 20 MCG/24HR, CONT
     Route: 015
     Dates: start: 20121216

REACTIONS (9)
  - Device difficult to use [None]
  - Abdominal pain lower [None]
  - Complication of device insertion [None]
  - Vulvovaginal burning sensation [None]
  - Dysgeusia [None]
  - Amenorrhoea [None]
  - Device use issue [None]
  - Asthma [None]
  - Vaginal infection [None]
